FAERS Safety Report 25839694 (Version 1)
Quarter: 2025Q3

REPORT INFORMATION
  Report Type: Report from Study
  Country: US (occurrence: US)
  Receive Date: 20250924
  Receipt Date: 20250924
  Transmission Date: 20251020
  Serious: Yes (Other)
  Sender: GILEAD
  Company Number: US-GILEAD-2025-0729274

PATIENT
  Age: 60 Year
  Sex: Male

DRUGS (8)
  1. AZTREONAM LYSINE [Suspect]
     Active Substance: AZTREONAM LYSINE
     Indication: Cystic fibrosis
     Dosage: INHALE 75 MG VIA NEBULIZER 3 TIMES A DAY FOR 28 DAYS ON 28 DAYS OFF
     Route: 055
     Dates: start: 20250529
  2. ELIQUIS [Concomitant]
     Active Substance: APIXABAN
  3. EZETIMIBE [Concomitant]
     Active Substance: EZETIMIBE
  4. GABAPENTIN [Concomitant]
     Active Substance: GABAPENTIN
  5. PANTOPRAZOLE [Concomitant]
     Active Substance: PANTOPRAZOLE
  6. TAMSULOSIN [Concomitant]
     Active Substance: TAMSULOSIN
  7. TYLENOL [Concomitant]
     Active Substance: ACETAMINOPHEN
  8. VERAPAMIL [Concomitant]
     Active Substance: VERAPAMIL HYDROCHLORIDE

REACTIONS (4)
  - Infective pulmonary exacerbation of cystic fibrosis [Not Recovered/Not Resolved]
  - Loss of personal independence in daily activities [Unknown]
  - Social problem [Unknown]
  - Dyspnoea [Unknown]
